FAERS Safety Report 7344440-X (Version None)
Quarter: 2011Q1

REPORT INFORMATION
  Report Type: 
  Country: None (occurrence: None)
  Receive Date: 20110310
  Receipt Date: 20110114
  Transmission Date: 20110831
  Serious: No
  Sender: FDA-Public Use
  Company Number: A0906120A

PATIENT
  Age: 65 Year
  Sex: Male

DRUGS (2)
  1. NICORETTE (MINT) [Suspect]
     Dates: start: 20110111, end: 20110113
  2. NICORETTE [Suspect]

REACTIONS (2)
  - NAUSEA [None]
  - DECREASED APPETITE [None]
